FAERS Safety Report 14299806 (Version 2)
Quarter: 2022Q1

REPORT INFORMATION
  Report Type: Spontaneous
  Country: FR (occurrence: FR)
  Receive Date: 20171219
  Receipt Date: 20220222
  Transmission Date: 20220424
  Serious: Yes (Hospitalization)
  Sender: FDA-Public Use
  Company Number: FR-MERCK KGAA-8206453

PATIENT
  Age: 70 Year
  Sex: Male

DRUGS (17)
  1. ATENOLOL [Suspect]
     Active Substance: ATENOLOL
     Indication: Product used for unknown indication
     Dosage: 1 DOSAGE FORM
     Route: 048
  2. ATENOLOL [Suspect]
     Active Substance: ATENOLOL
     Dosage: 50 MILLIGRAM
     Route: 048
  3. ALLOPURINOL [Suspect]
     Active Substance: ALLOPURINOL
     Indication: Product used for unknown indication
     Dosage: 20 MILLIGRAM
     Route: 048
  4. ACAMPROSATE CALCIUM [Suspect]
     Active Substance: ACAMPROSATE CALCIUM
     Indication: Product used for unknown indication
     Dosage: 666 MG, TID, PREVIOUSLY 126 DOSAGE FORM
     Route: 048
     Dates: start: 20171002, end: 20171023
  5. BETAHISTINE HYDROCHLORIDE [Suspect]
     Active Substance: BETAHISTINE HYDROCHLORIDE
     Indication: Product used for unknown indication
     Dosage: 24 MG, BID, DOSE PREVIOUSLY 2 DOSAGE FORM
     Route: 048
     Dates: end: 20171023
  6. ACETYLLEUCINE, L- [Suspect]
     Active Substance: ACETYLLEUCINE, L-
     Indication: Product used for unknown indication
     Dosage: 2 DF, QD
     Route: 048
     Dates: end: 20171023
  7. RAMIPRIL [Suspect]
     Active Substance: RAMIPRIL
     Indication: Product used for unknown indication
     Dosage: 1.25 MG, QD, PREVIOUSLY 1 DOSAGE FORM
     Route: 048
     Dates: end: 20171024
  8. DOLIPRANE [Suspect]
     Active Substance: ACETAMINOPHEN
     Indication: Product used for unknown indication
     Dosage: PREVIOUSLY 1 DOSAGE FORM
     Route: 048
     Dates: end: 20171023
  9. FENOFIBRATE [Suspect]
     Active Substance: FENOFIBRATE
     Indication: Product used for unknown indication
     Dosage: 145 MG, QD, PREVIOUSLY 1 DOSAGE FORM
     Route: 065
     Dates: end: 20171024
  10. IXPRIM [Suspect]
     Active Substance: ACETAMINOPHEN\TRAMADOL HYDROCHLORIDE
     Indication: Product used for unknown indication
     Dosage: 37.5 MG/325 MG, 1 DF, QD
     Route: 048
     Dates: end: 20171023
  11. TRANXENE [Suspect]
     Active Substance: CLORAZEPATE DIPOTASSIUM
     Indication: Product used for unknown indication
     Dosage: 4 DOSAGE FORM
     Route: 048
     Dates: start: 20171002, end: 20171024
  12. TRANXENE [Suspect]
     Active Substance: CLORAZEPATE DIPOTASSIUM
     Dosage: 20 MG, BID
     Route: 048
     Dates: start: 20171002, end: 20171023
  13. PYRIDOXINE HYDROCHLORIDE\THIAMINE HYDROCHLORIDE [Concomitant]
     Active Substance: PYRIDOXINE HYDROCHLORIDE\THIAMINE HYDROCHLORIDE
     Indication: Product used for unknown indication
     Dosage: 2/DAY ()
  14. PYRIDOXINE\THIAMINE [Concomitant]
     Active Substance: PYRIDOXINE\THIAMINE
     Indication: Product used for unknown indication
     Dosage: 2 DOSAGE FORM
     Route: 065
  15. AMOXICILLIN\CLAVULANATE POTASSIUM [Concomitant]
     Active Substance: AMOXICILLIN\CLAVULANATE POTASSIUM
     Indication: Influenza like illness
     Dosage: 2 DOSAGE FORM
     Route: 065
     Dates: start: 20171002
  16. ASPIRIN [Concomitant]
     Active Substance: ASPIRIN
     Indication: Product used for unknown indication
     Dosage: 100 MG, QD
     Route: 065
  17. XARELTO [Suspect]
     Active Substance: RIVAROXABAN
     Indication: Atrial fibrillation
     Dosage: REGULAR TREATMENT?20 MG, QD, DOSE PREVIOUSLY 1 DOSAGE FORM
     Route: 048
     Dates: end: 20171024

REACTIONS (3)
  - Hepatitis acute [Recovering/Resolving]
  - Anticoagulation drug level above therapeutic [Recovered/Resolved]
  - Inappropriate schedule of product administration [Unknown]

NARRATIVE: CASE EVENT DATE: 20171024
